FAERS Safety Report 9347367 (Version 2)
Quarter: 2014Q4

REPORT INFORMATION
  Report Type: Report from Study
  Country: CA (occurrence: CA)
  Receive Date: 20130613
  Receipt Date: 20141231
  Transmission Date: 20150529
  Serious: Yes (Hospitalization, Other)
  Sender: FDA-Public Use
  Company Number: CA-ALEXION PHARMACEUTICALS INC.-A201301336

PATIENT
  Age: 6 Year
  Sex: Female
  Weight: 41.8 kg

DRUGS (7)
  1. ECULIZUMAB [Suspect]
     Active Substance: ECULIZUMAB
     Dosage: 900 MG, Q2W
     Route: 042
     Dates: start: 20120501
  2. MINIPRESS [Concomitant]
     Active Substance: PRAZOSIN HYDROCHLORIDE
     Dosage: 1 MG, BID
     Route: 048
     Dates: start: 20100503
  3. ECULIZUMAB [Suspect]
     Active Substance: ECULIZUMAB
     Indication: HAEMOLYTIC URAEMIC SYNDROME
     Dosage: 600 MG, Q2W
     Route: 042
     Dates: start: 20100517, end: 20120501
  4. LOSARTAN [Concomitant]
     Active Substance: LOSARTAN
     Dosage: 25 MG DIE
     Route: 048
     Dates: start: 20100503, end: 20100527
  5. PEN-VEE [Concomitant]
     Indication: PROPHYLAXIS
     Dosage: 300 MG, BID
     Dates: start: 20091008, end: 20101213
  6. LOSARTAN [Concomitant]
     Active Substance: LOSARTAN
     Dosage: 12.5 MG DIE
     Route: 048
     Dates: start: 20100503, end: 20100527
  7. NORVASC [Concomitant]
     Active Substance: AMLODIPINE BESYLATE
     Dosage: 3 MG DIE
     Route: 048
     Dates: start: 20100503, end: 20100513

REACTIONS (1)
  - Gastroenteritis bacterial [Recovered/Resolved]

NARRATIVE: CASE EVENT DATE: 20100711
